FAERS Safety Report 13557258 (Version 2)
Quarter: 2019Q1

REPORT INFORMATION
  Report Type: Spontaneous
  Country: US (occurrence: US)
  Receive Date: 20170518
  Receipt Date: 20190301
  Transmission Date: 20190417
  Serious: Yes (Other)
  Sender: FDA-Public Use
  Company Number: US-ASTRAZENECA-2017SE51095

PATIENT
  Age: 29047 Day
  Sex: Female

DRUGS (12)
  1. RANITIDINE. [Concomitant]
     Active Substance: RANITIDINE
  2. SUCRALFATE. [Concomitant]
     Active Substance: SUCRALFATE
  3. TRAMADOL. [Concomitant]
     Active Substance: TRAMADOL
  4. TIZANIDINE. [Concomitant]
     Active Substance: TIZANIDINE
  5. NEXIUM [Suspect]
     Active Substance: ESOMEPRAZOLE MAGNESIUM
     Route: 048
     Dates: start: 20130603
  6. ATORVASTATIN [Concomitant]
     Active Substance: ATORVASTATIN
  7. AMLODIPINE [Concomitant]
     Active Substance: AMLODIPINE BESYLATE
  8. ROPINIROLE. [Concomitant]
     Active Substance: ROPINIROLE
  9. NEXIUM [Suspect]
     Active Substance: ESOMEPRAZOLE MAGNESIUM
     Route: 048
     Dates: start: 200306, end: 201610
  10. PANTOPRAZOLE [Concomitant]
     Active Substance: PANTOPRAZOLE
  11. FLUTICASONE. [Concomitant]
     Active Substance: FLUTICASONE
  12. NAPROXEN. [Concomitant]
     Active Substance: NAPROXEN

REACTIONS (6)
  - End stage renal disease [Unknown]
  - Renal injury [Unknown]
  - Nephrogenic anaemia [Unknown]
  - Acute kidney injury [Unknown]
  - Chronic kidney disease [Unknown]
  - Tubulointerstitial nephritis [Unknown]

NARRATIVE: CASE EVENT DATE: 20161024
